FAERS Safety Report 9347092 (Version 3)
Quarter: 2013Q3

REPORT INFORMATION
  Report Type: Report from Study
  Country: JP (occurrence: JP)
  Receive Date: 20130613
  Receipt Date: 20130731
  Transmission Date: 20140515
  Serious: No
  Sender: FDA-Public Use
  Company Number: JP-GLAXOSMITHKLINE-B0898015A

PATIENT
  Age: 72 Year
  Sex: Female

DRUGS (4)
  1. VOTRIENT [Suspect]
     Indication: UNDIFFERENTIATED SARCOMA
     Dosage: 400MG PER DAY
     Route: 048
     Dates: start: 20130402, end: 20130426
  2. VOTRIENT [Suspect]
     Indication: UNDIFFERENTIATED SARCOMA
     Dosage: 200MG PER DAY
     Route: 048
     Dates: start: 20130427, end: 20130517
  3. ROPION [Suspect]
     Indication: PRODUCT USED FOR UNKNOWN INDICATION
     Route: 042
  4. TRAMAL [Suspect]
     Indication: PRODUCT USED FOR UNKNOWN INDICATION
     Route: 065

REACTIONS (1)
  - Hepatic function abnormal [Recovered/Resolved]
